FAERS Safety Report 22235365 (Version 1)
Quarter: 2023Q2

REPORT INFORMATION
  Report Type: Spontaneous
  Country: US (occurrence: None)
  Receive Date: 20230419
  Receipt Date: 20230419
  Transmission Date: 20230722
  Serious: Yes (Death)
  Sender: FDA-Public Use
  Company Number: None

PATIENT
  Age: 76 Year
  Sex: Male
  Weight: 83.1 kg

DRUGS (10)
  1. CAPECITABINE [Suspect]
     Active Substance: CAPECITABINE
     Indication: Colon cancer
     Dosage: 1000-1500MG TWICE DAILY ORAL?
     Route: 048
     Dates: start: 202303, end: 20230401
  2. AUGMENTIN [Concomitant]
     Active Substance: AMOXICILLIN\CLAVULANATE POTASSIUM
  3. ELIQUIS [Concomitant]
     Active Substance: APIXABAN
  4. FLUONAZOLE [Concomitant]
  5. ONDANSETRON [Concomitant]
     Active Substance: ONDANSETRON
  6. OXALIPLATIN [Concomitant]
     Active Substance: OXALIPLATIN
  7. PEPCID [Concomitant]
     Active Substance: FAMOTIDINE
  8. PRAVASTATIN [Concomitant]
     Active Substance: PRAVASTATIN
  9. ROXICODONE [Concomitant]
     Active Substance: OXYCODONE HYDROCHLORIDE
  10. TYLENOL [Concomitant]
     Active Substance: ACETAMINOPHEN

REACTIONS (1)
  - Death [None]

NARRATIVE: CASE EVENT DATE: 20230401
